FAERS Safety Report 11031523 (Version 1)
Quarter: 2015Q2

REPORT INFORMATION
  Report Type: Report from Study
  Country: CA (occurrence: None)
  Receive Date: 20150413
  Receipt Date: 20150413
  Transmission Date: 20150821
  Serious: Yes (Other)
  Sender: FDA-Public Use
  Company Number: 2817235

PATIENT
  Age: 48 Year
  Sex: Male

DRUGS (2)
  1. GILENYA [Suspect]
     Active Substance: FINGOLIMOD HYDROCHLORIDE
     Indication: RELAPSING-REMITTING MULTIPLE SCLEROSIS
  2. CIPROFLOXACIN. [Suspect]
     Active Substance: CIPROFLOXACIN
     Indication: URINARY TRACT INFECTION

REACTIONS (10)
  - Cystitis [None]
  - Tremor [None]
  - Fatigue [None]
  - Abdominal discomfort [None]
  - Urinary tract infection [None]
  - Nasopharyngitis [None]
  - Nightmare [None]
  - Oral herpes [None]
  - Pyrexia [None]
  - Gait disturbance [None]
